FAERS Safety Report 4630364-5 (Version None)
Quarter: 2005Q2

REPORT INFORMATION
  Report Type: 
  Country: None (occurrence: None)
  Receive Date: 20050406
  Receipt Date: 20050323
  Transmission Date: 20051028
  Serious: Yes (Other)
  Sender: FDA-Public Use
  Company Number: 2005040373

PATIENT
  Age: 62 Year
  Sex: Female
  Weight: 93.8946 kg

DRUGS (5)
  1. BEXTRA [Suspect]
     Indication: ARTHRITIS
     Dosage: 20 MG (20 MG, 1 IN  1 D), ORAL
     Route: 048
     Dates: start: 20041014, end: 20041021
  2. ROFEXCOXIB (ROFECOXIB) [Concomitant]
  3. ALENDRONATE SODIUM [Concomitant]
  4. MULTIVITAMINS (ASCORBIC ACID, ERGOCALCIFERFOL, FOLIC ACID, NICOTINAMID [Concomitant]
  5. TOCOPHEROL (TOCOPHEROL) [Concomitant]

REACTIONS (4)
  - ADVERSE DRUG REACTION [None]
  - EYE SWELLING [None]
  - OEDEMA PERIPHERAL [None]
  - RASH PAPULAR [None]
